FAERS Safety Report 8353944-2 (Version None)
Quarter: 2012Q2

REPORT INFORMATION
  Report Type: 
  Country: None (occurrence: None)
  Receive Date: 20120511
  Receipt Date: 20120503
  Transmission Date: 20120825
  Serious: Yes (Hospitalization)
  Sender: FDA-Public Use
  Company Number: US-VIROPHARMA INCORPORATED-20120426CINRY2928

PATIENT
  Sex: Male

DRUGS (13)
  1. CINRYZE [Suspect]
     Indication: HEREDITARY ANGIOEDEMA
     Dates: start: 20090501
  2. PROMETHAZINE [Concomitant]
     Indication: NAUSEA
     Route: 048
  3. PROMETHAZINE [Concomitant]
     Indication: VOMITING
  4. ASPIRIN [Concomitant]
     Indication: ANTICOAGULANT THERAPY
     Route: 048
  5. MULTI-VITAMIN [Concomitant]
     Indication: SUPPLEMENTATION THERAPY
     Route: 048
  6. PROCHLORPERAZINE [Concomitant]
     Indication: VOMITING
  7. REQUIP [Suspect]
     Indication: PARKINSON'S DISEASE
     Route: 048
  8. PROCHLORPERAZINE [Concomitant]
     Indication: NAUSEA
     Route: 048
  9. BENADRYL [Concomitant]
     Indication: PRODUCT USED FOR UNKNOWN INDICATION
     Dosage: UNKNOWN
     Route: 048
  10. NEXIUM [Concomitant]
     Indication: GASTROOESOPHAGEAL REFLUX DISEASE
     Route: 048
  11. TRAMADOL HYDROCHLORIDE [Concomitant]
     Indication: PAIN
     Route: 048
  12. AMLODIPINE BESYLATE [Suspect]
     Indication: HYPERTENSION
     Dosage: UNKNOWN
     Route: 048
  13. SUMATRIPTAN [Concomitant]
     Indication: MIGRAINE
     Route: 048

REACTIONS (1)
  - BRADYCARDIA [None]
